FAERS Safety Report 19955051 (Version 1)
Quarter: 2021Q4

REPORT INFORMATION
  Report Type: Spontaneous
  Country: SE (occurrence: SE)
  Receive Date: 20211014
  Receipt Date: 20211014
  Transmission Date: 20220303
  Serious: Yes (Other)
  Sender: FDA-Public Use
  Company Number: None

PATIENT
  Age: 50 Year
  Sex: Female

DRUGS (2)
  1. CLINDAMYCIN [Suspect]
     Active Substance: CLINDAMYCIN
     Indication: Erysipelas
     Dosage: UNK
     Dates: start: 202108, end: 202108
  2. PENICILLIN G [Suspect]
     Active Substance: PENICILLIN G
     Indication: Erysipelas
     Dosage: UNK
     Dates: start: 202108, end: 202108

REACTIONS (2)
  - Pharyngeal swelling [Recovering/Resolving]
  - Rash [Recovering/Resolving]

NARRATIVE: CASE EVENT DATE: 20210801
